FAERS Safety Report 5406403-0 (Version None)
Quarter: 2007Q3

REPORT INFORMATION
  Report Type: 
  Country: None (occurrence: None)
  Receive Date: 20070806
  Receipt Date: 20070801
  Transmission Date: 20080115
  Serious: Yes (Hospitalization)
  Sender: FDA-Public Use
  Company Number: US-BOEHRINGER INGELHEIM PHARMACEUTICALS, INC.-2007-BP-11914BP

PATIENT
  Age: 66 Year
  Sex: Female

DRUGS (7)
  1. SPIRIVA [Suspect]
     Indication: CHRONIC OBSTRUCTIVE PULMONARY DISEASE
     Route: 055
     Dates: start: 20070619
  2. SPIRIVA [Suspect]
     Indication: EMPHYSEMA
     Route: 055
     Dates: start: 20060101, end: 20070619
  3. LIPITOR [Concomitant]
  4. CARBIDOPA [Concomitant]
  5. NEXUS [Concomitant]
  6. EFFEXOR [Concomitant]
  7. BP MEDS [Concomitant]

REACTIONS (2)
  - BLOOD POTASSIUM DECREASED [None]
  - DYSPNOEA [None]
